FAERS Safety Report 4353607-4 (Version None)
Quarter: 2004Q2

REPORT INFORMATION
  Report Type: 
  Country: None (occurrence: None)
  Receive Date: 20040430
  Receipt Date: 20040427
  Transmission Date: 20050107
  Serious: Yes (Hospitalization, Other)
  Sender: FDA-Public Use
  Company Number: USA-2004-0013645

PATIENT
  Age: 46 Year
  Sex: Male

DRUGS (9)
  1. OXYCONTIN [Suspect]
     Indication: PAIN
     Dosage: 40 MG, Q12H, ORAL
     Route: 048
     Dates: start: 20031101
  2. PERCOCET [Concomitant]
  3. VALIUM [Concomitant]
  4. DEPAKOTE [Concomitant]
  5. TOPROL-XL [Concomitant]
  6. ASPIRIN [Concomitant]
  7. LEXAPRO [Concomitant]
  8. ZYPREXA [Concomitant]
  9. ZOCOR [Concomitant]

REACTIONS (4)
  - DETOXIFICATION [None]
  - DRUG ABUSER [None]
  - MEDICATION ERROR [None]
  - NECROTISING FASCIITIS [None]
